FAERS Safety Report 5768869-6 (Version None)
Quarter: 2008Q2

REPORT INFORMATION
  Report Type: 
  Country: None (occurrence: None)
  Receive Date: 20080610
  Receipt Date: 20080528
  Transmission Date: 20081010
  Serious: No
  Sender: FDA-Public Use
  Company Number: DSJ-2008-05975

PATIENT
  Age: 73 Year
  Sex: Female
  Weight: 65 kg

DRUGS (3)
  1. OLMESARTAN MEDOXOMIL [Suspect]
     Indication: HYPERTENSION
     Dosage: 20 MG (20 MG,1 IN 1 D), PER ORAL
     Route: 048
     Dates: start: 20080404, end: 20080507
  2. CALBLOCK (AZELNIDIPINE) (AZELINIDIPINE) [Concomitant]
  3. GOKUMISIN (URSODEOXYCHOLIC ACID) (URSODEOXYCHOLIC ACID) [Concomitant]

REACTIONS (1)
  - PLATELET COUNT DECREASED [None]
